FAERS Safety Report 4043017 (Version 34)
Quarter: 2013Q3

REPORT INFORMATION
  Report Type: Spontaneous
  Country: US (occurrence: US)
  Receive Date: 20031216
  Receipt Date: 20130710
  Transmission Date: 20140515
  Serious: Yes (Hospitalization, Other)
  Sender: FDA-Public Use
  Company Number: PHEH2003US11069

PATIENT
  Age: 83 Year
  Sex: Female
  Weight: 165 kg

DRUGS (60)
  1. AREDIA [Suspect]
     Indication: PLASMA CELL MYELOMA
     Dosage: 90 MG, QMO
     Route: 042
     Dates: start: 1995, end: 2002
  2. ZOMETA [Suspect]
     Indication: PLASMA CELL MYELOMA
     Dosage: 4 MG EVERY MONTH
     Route: 042
     Dates: start: 2002, end: 200609
  3. ZOMETA [Suspect]
     Dosage: UNK UKN, Q3MO
  4. KYTRIL [Concomitant]
  5. ESTROGENS CONJUGATED [Concomitant]
  6. COZAAR [Concomitant]
     Dosage: 50 MG, BID
     Route: 048
  7. PROZAC [Concomitant]
  8. ESOMEPRAZOLE [Concomitant]
  9. VIOXX [Concomitant]
  10. DIAZEPAM [Concomitant]
  11. ALKERAN [Concomitant]
  12. ALLOPURINOL [Concomitant]
  13. PREDNISONE [Concomitant]
  14. CLINDAMYCIN [Concomitant]
  15. LEVAQUIN [Concomitant]
  16. PENICILLIN [Concomitant]
  17. AROMASIN [Concomitant]
  18. PERIDEX [Concomitant]
  19. CELEXA [Concomitant]
  20. NEURONTIN [Concomitant]
     Dosage: 600 MG, TID
  21. CHEMOTHERAPEUTICS NOS [Concomitant]
  22. ERYTHROMYCIN [Concomitant]
  23. SINEQUAN [Concomitant]
  24. PRILOSEC [Concomitant]
  25. ASPIRIN [Concomitant]
  26. NEXIUM [Concomitant]
  27. CYMBALTA [Concomitant]
  28. ARICEPT [Concomitant]
  29. LEVOTHYROXINE [Concomitant]
  30. CARDIZEM [Concomitant]
  31. CLONAZEPAM [Concomitant]
     Route: 048
  32. PEPCID [Concomitant]
     Dosage: 20 MG, BID
     Route: 048
  33. LOVENOX [Concomitant]
     Dosage: 30 MG, Q12H
     Route: 058
  34. ZOFRAN [Concomitant]
     Dosage: 4 MG, Q6H
     Route: 042
  35. VASOTEC [Concomitant]
     Dosage: 1.25 MG, PRN
     Route: 048
  36. RESTORIL [Concomitant]
     Dosage: 15 MG, PRN, HS
     Route: 048
  37. PROCARDIA [Concomitant]
     Dosage: 30 MG, UNK
     Route: 048
  38. CEFTIN [Concomitant]
     Dosage: 250 MG, UNK
     Route: 048
  39. ANZEMET [Concomitant]
     Dosage: 12.5 MG, PRN
  40. ADALAT [Concomitant]
     Dosage: 30 MG, UNK
     Route: 048
  41. ADALAT [Concomitant]
     Dosage: 60 MG, UNK
     Route: 048
  42. PREMARIN                                /NEZ/ [Concomitant]
  43. PROTONIX [Concomitant]
  44. LIDOCAINE [Concomitant]
     Route: 062
  45. COSOPT [Concomitant]
  46. TRAVATAN [Concomitant]
  47. HYZAAR [Concomitant]
  48. LIPITOR                                 /NET/ [Concomitant]
  49. HYDROCHLOROTHIAZIDE [Concomitant]
  50. ARIMIDEX [Concomitant]
  51. REVLIMID [Concomitant]
  52. DEXAMETHASONE [Concomitant]
  53. CHLORHEXIDINE [Concomitant]
  54. VITAMINS [Concomitant]
  55. OMEGA 3 [Concomitant]
  56. VITAMIN B-12 [Concomitant]
  57. B-COMPLEX [Concomitant]
  58. VITAMIN D [Concomitant]
  59. TIMOLOL [Concomitant]
  60. CLEOCIN [Concomitant]

REACTIONS (162)
  - Onychomycosis [Unknown]
  - Ingrowing nail [Unknown]
  - Alopecia [Unknown]
  - Intraductal proliferative breast lesion [Unknown]
  - Oestrogen receptor positive breast cancer [Unknown]
  - Progesterone receptor assay positive [Unknown]
  - Spondylolisthesis [Unknown]
  - Intervertebral disc protrusion [Unknown]
  - Oedema [Unknown]
  - Haemorrhoids [Unknown]
  - Insomnia [Unknown]
  - Central nervous system lesion [Unknown]
  - Haematochezia [Unknown]
  - Tinnitus [Unknown]
  - Haematuria [Unknown]
  - Myalgia [Unknown]
  - Cough [Unknown]
  - Wheezing [Unknown]
  - Cardiac valve disease [Unknown]
  - Cardiac septal hypertrophy [Unknown]
  - Mitral valve incompetence [Unknown]
  - Aortic valve incompetence [Unknown]
  - Dysponesis [Unknown]
  - Oedema peripheral [Unknown]
  - Hypoaesthesia [Unknown]
  - Mitral valve calcification [Unknown]
  - Left atrial dilatation [Unknown]
  - Atrial fibrillation [Unknown]
  - Pericardial effusion [Recovered/Resolved]
  - Hypoglobulinaemia [Unknown]
  - Rib fracture [Unknown]
  - Pulmonary valve incompetence [Unknown]
  - Coagulopathy [Unknown]
  - Gastrointestinal haemorrhage [Unknown]
  - Aortic stenosis [Unknown]
  - Right ventricular systolic pressure increased [Unknown]
  - Neuropathy peripheral [Unknown]
  - Actinic keratosis [Unknown]
  - Decubitus ulcer [Unknown]
  - Dermatitis [Unknown]
  - Seborrhoeic keratosis [Unknown]
  - Peripheral vascular disorder [Unknown]
  - Carotid bruit [Unknown]
  - Pathological fracture [Unknown]
  - Paraesthesia [Unknown]
  - Arteriovenous malformation [Unknown]
  - Iron deficiency anaemia [Unknown]
  - Oesophageal ulcer [Unknown]
  - Traumatic ulcer [Unknown]
  - Bone lesion [Unknown]
  - Osteosclerosis [Unknown]
  - Osteolysis [Unknown]
  - Metastases to bone [Unknown]
  - Lordosis [Unknown]
  - Palatal disorder [Unknown]
  - Lip pain [Unknown]
  - Glossodynia [Unknown]
  - Groin pain [Unknown]
  - Abdominal pain [Unknown]
  - Musculoskeletal pain [Unknown]
  - Muscle spasms [Unknown]
  - Renal cyst [Unknown]
  - Cerebral small vessel ischaemic disease [Unknown]
  - Cerebellar infarction [Unknown]
  - Arteriosclerosis [Unknown]
  - Osteoporosis [Unknown]
  - Arrhythmia [Unknown]
  - Gastritis erosive [Unknown]
  - Hypertonic bladder [Unknown]
  - Musculoskeletal chest pain [Unknown]
  - Fibrous histiocytoma [Unknown]
  - Myelodysplastic syndrome [Unknown]
  - Chronic myeloid leukaemia [Unknown]
  - Skin discolouration [Unknown]
  - Pancytopenia [Unknown]
  - Onycholysis [Unknown]
  - Osteonecrosis of jaw [Not Recovered/Not Resolved]
  - Hip fracture [Unknown]
  - Deformity [Unknown]
  - Hypophagia [Unknown]
  - Anxiety [Unknown]
  - Exposed bone in jaw [Unknown]
  - Abscess jaw [Unknown]
  - Swelling [Not Recovered/Not Resolved]
  - Emotional distress [Unknown]
  - Impaired healing [Unknown]
  - Purulent discharge [Unknown]
  - Gingival bleeding [Unknown]
  - Injury [Not Recovered/Not Resolved]
  - Pain [Unknown]
  - Bladder cancer recurrent [Unknown]
  - Osteomyelitis [Recovering/Resolving]
  - Rectal haemorrhage [Unknown]
  - Large intestine benign neoplasm [Unknown]
  - Diverticulum intestinal [Unknown]
  - Glaucoma [Unknown]
  - Transient ischaemic attack [Unknown]
  - Cataract [Unknown]
  - Femur fracture [Unknown]
  - Spinal column stenosis [Unknown]
  - Spinal osteoarthritis [Unknown]
  - Intervertebral disc degeneration [Unknown]
  - Carpal tunnel syndrome [Unknown]
  - Radiculopathy [Unknown]
  - Haemangioma of bone [Unknown]
  - Mental status changes [Unknown]
  - Poor quality sleep [Unknown]
  - Confusional state [Unknown]
  - Disorientation [Unknown]
  - Blood pressure increased [Unknown]
  - Urosepsis [Unknown]
  - Urinary tract infection [Unknown]
  - Urine odour abnormal [Unknown]
  - Urinary incontinence [Unknown]
  - Pollakiuria [Unknown]
  - Pyrexia [Unknown]
  - Chills [Unknown]
  - Fatigue [Unknown]
  - Malaise [Unknown]
  - Speech disorder [Unknown]
  - Hypercalcaemia [Unknown]
  - Bronchitis [Unknown]
  - Arthralgia [Unknown]
  - Fall [Unknown]
  - Diabetes mellitus [Unknown]
  - Nocturia [Unknown]
  - Uterine cancer [Unknown]
  - Second primary malignancy [Unknown]
  - Angina pectoris [Unknown]
  - Carotid artery stenosis [Unknown]
  - Cardiomegaly [Unknown]
  - Nephrolithiasis [Unknown]
  - Tricuspid valve incompetence [Unknown]
  - Pulmonary hypertension [Unknown]
  - Palpitations [Unknown]
  - Skin papilloma [Unknown]
  - Erosive oesophagitis [Unknown]
  - Sinus congestion [Unknown]
  - Constipation [Unknown]
  - Cognitive disorder [Unknown]
  - Amnesia [Unknown]
  - Eyelid ptosis [Unknown]
  - Chest pain [Unknown]
  - Diarrhoea [Unknown]
  - Asthenia [Unknown]
  - Gait disturbance [Recovering/Resolving]
  - Dizziness [Recovering/Resolving]
  - Pain in extremity [Unknown]
  - Hyperlipidaemia [Unknown]
  - Hyperparathyroidism [Unknown]
  - Dyspnoea exertional [Unknown]
  - Bursitis [Unknown]
  - Osteopenia [Unknown]
  - Rotator cuff syndrome [Unknown]
  - Back pain [Unknown]
  - Hypoacusis [Unknown]
  - Rosacea [Unknown]
  - Hyperkeratosis [Unknown]
  - Leukopenia [Unknown]
  - Tendonitis [Unknown]
  - Coronary artery disease [Unknown]
  - Aortic arteriosclerosis [Unknown]
